FAERS Safety Report 9601904 (Version 2)
Quarter: 2013Q4

REPORT INFORMATION
  Report Type: Spontaneous
  Country: JP (occurrence: JP)
  Receive Date: 20131007
  Receipt Date: 20131118
  Transmission Date: 20140711
  Serious: Yes (Life-Threatening, Hospitalization)
  Sender: FDA-Public Use
  Company Number: JP-JNJFOC-20131002602

PATIENT
  Age: 83 Year
  Sex: Male
  Weight: 57 kg

DRUGS (6)
  1. XARELTO [Suspect]
     Indication: CEREBROVASCULAR ACCIDENT PROPHYLAXIS
     Route: 048
     Dates: start: 20130813, end: 20130924
  2. XARELTO [Suspect]
     Indication: ATRIAL FIBRILLATION
     Route: 048
     Dates: start: 20130813, end: 20130924
  3. DIGOXIN [Concomitant]
     Route: 048
  4. NU-LOTAN [Concomitant]
     Route: 048
  5. AMLODIN [Concomitant]
     Route: 048
  6. ZETIA [Concomitant]
     Route: 048
     Dates: start: 20090302

REACTIONS (1)
  - Interstitial lung disease [Not Recovered/Not Resolved]
